FAERS Safety Report 5747731-9 (Version None)
Quarter: 2008Q2

REPORT INFORMATION
  Report Type: 
  Country: None (occurrence: None)
  Receive Date: 20080523
  Receipt Date: 20080515
  Transmission Date: 20081010
  Serious: Yes (Hospitalization)
  Sender: FDA-Public Use
  Company Number: CH-ASTRAZENECA-2008PK01022

PATIENT
  Age: 73 Year
  Sex: Female

DRUGS (14)
  1. SEROQUEL [Suspect]
     Route: 048
     Dates: end: 20080118
  2. SEROQUEL [Suspect]
     Route: 048
     Dates: start: 20080119, end: 20080121
  3. SEROQUEL [Suspect]
     Route: 048
     Dates: start: 20080122, end: 20080130
  4. SEROQUEL [Suspect]
     Route: 048
     Dates: start: 20080131
  5. ARICEPT [Suspect]
     Route: 048
  6. HALDOL [Suspect]
     Route: 048
     Dates: end: 20080120
  7. HALDOL [Suspect]
     Route: 048
     Dates: start: 20080121, end: 20080125
  8. HALDOL [Suspect]
     Route: 048
     Dates: start: 20080205
  9. LORAZEPAM [Suspect]
     Route: 048
     Dates: start: 20080201, end: 20080205
  10. LORAZEPAM [Suspect]
     Route: 048
     Dates: start: 20080206, end: 20080207
  11. LORAZEPAM [Suspect]
     Route: 048
     Dates: start: 20080208
  12. DIPIPERON [Suspect]
     Route: 048
     Dates: start: 20080206
  13. ENTUMIN [Suspect]
     Route: 048
     Dates: start: 20080208
  14. ZURCAL [Concomitant]
     Route: 048

REACTIONS (7)
  - DELIRIUM [None]
  - GAMMOPATHY [None]
  - HYPERCALCAEMIA [None]
  - HYPERNATRAEMIA [None]
  - HYPERPARATHYROIDISM [None]
  - HYPERTHYROIDISM [None]
  - HYPERVISCOSITY SYNDROME [None]
